FAERS Safety Report 22277838 (Version 2)
Quarter: 2023Q2

REPORT INFORMATION
  Report Type: Report from Study
  Country: CA (occurrence: CA)
  Receive Date: 20230503
  Receipt Date: 20230511
  Transmission Date: 20230721
  Serious: Yes (Other)
  Sender: FDA-Public Use
  Company Number: CA-BAUSCH-BL-2022-014311

PATIENT
  Sex: Male
  Weight: 113.95 kg

DRUGS (7)
  1. CONTRAVE [Suspect]
     Active Substance: BUPROPION HYDROCHLORIDE\NALTREXONE HYDROCHLORIDE
     Indication: Weight control
     Dosage: 90/8MG
     Route: 048
     Dates: start: 2022
  2. CONTRAVE [Suspect]
     Active Substance: BUPROPION HYDROCHLORIDE\NALTREXONE HYDROCHLORIDE
     Dosage: 90/8MG, 2 TABS IN MORNING, 2 TABS IN EVENING
     Route: 048
     Dates: start: 20220403, end: 20220409
  3. CONTRAVE [Suspect]
     Active Substance: BUPROPION HYDROCHLORIDE\NALTREXONE HYDROCHLORIDE
     Dosage: 90/8MG, 1 TAB IN MORNING, 1 TAB IN EVENING (REDUCED)
     Route: 048
     Dates: start: 20220410, end: 2022
  4. CONTRAVE [Suspect]
     Active Substance: BUPROPION HYDROCHLORIDE\NALTREXONE HYDROCHLORIDE
     Dosage: 90/8MG, 2 TABS IN MORNING, 1 TAB IN EVENING
     Route: 048
     Dates: start: 20220605, end: 2022
  5. CONTRAVE [Suspect]
     Active Substance: BUPROPION HYDROCHLORIDE\NALTREXONE HYDROCHLORIDE
     Dosage: 90/8MG, 2 TABS IN MORNING, 2 TAB IN EVENING
     Route: 048
     Dates: start: 202209, end: 20230202
  6. CONTRAVE [Suspect]
     Active Substance: BUPROPION HYDROCHLORIDE\NALTREXONE HYDROCHLORIDE
     Dosage: 90/8MG, 2 TABS IN MORNING, 1 TAB IN EVENING
     Route: 048
     Dates: start: 20230203
  7. TRAMADOL HYDROCHLORIDE [Suspect]
     Active Substance: TRAMADOL HYDROCHLORIDE
     Indication: Pain
     Dosage: AS PER NEEDED
     Route: 065

REACTIONS (14)
  - Intervertebral disc protrusion [Not Recovered/Not Resolved]
  - Hunger [Recovered/Resolved]
  - Food craving [Recovered/Resolved]
  - Condition aggravated [Recovered/Resolved]
  - Gait inability [Recovering/Resolving]
  - COVID-19 [Recovered/Resolved]
  - Sedation [Unknown]
  - Muscle strain [Unknown]
  - Constipation [Not Recovered/Not Resolved]
  - Malaise [Recovered/Resolved]
  - Therapeutic response unexpected [Unknown]
  - Product dose omission in error [Unknown]
  - Off label use [Unknown]
  - Contraindicated product administered [Unknown]

NARRATIVE: CASE EVENT DATE: 20220101
